FAERS Safety Report 21156172 (Version 2)
Quarter: 2023Q1

REPORT INFORMATION
  Report Type: Spontaneous
  Country: CA (occurrence: CA)
  Receive Date: 20220801
  Receipt Date: 20230202
  Transmission Date: 20230417
  Serious: Yes (Hospitalization, Disabling, Congenital Anomaly, Other)
  Sender: FDA-Public Use
  Company Number: None

PATIENT
  Sex: Female
  Weight: 2.71 kg

DRUGS (2)
  1. CITALOPRAM HYDROBROMIDE [Suspect]
     Active Substance: CITALOPRAM HYDROBROMIDE
     Indication: Exposure during pregnancy
     Dosage: 20 MG, QD
     Route: 064
  2. DOXYLAMINESUCCINATE/PYRIDOXINE HYDROCHLORIDE [Concomitant]
     Dosage: TID, 10 + 10MG
     Route: 064

REACTIONS (5)
  - Cerebral ventricle dilatation [Recovered/Resolved]
  - Congenital aqueductal stenosis [Recovered/Resolved]
  - Hydrocephalus [Recovered/Resolved]
  - Respiratory distress [Recovered/Resolved]
  - Pregnancy [Unknown]

NARRATIVE: CASE EVENT DATE: 20210101
